FAERS Safety Report 12882985 (Version 1)
Quarter: 2016Q4

REPORT INFORMATION
  Report Type: Spontaneous
  Country: US (occurrence: US)
  Receive Date: 20161025
  Receipt Date: 20161025
  Transmission Date: 20170207
  Serious: No
  Sender: FDA-Public Use
  Company Number: US-SA-2016SA083414

PATIENT
  Sex: Female
  Weight: 9.97 kg

DRUGS (8)
  1. NORMAL SALINE [Concomitant]
     Active Substance: SODIUM CHLORIDE
     Indication: FLUSHING
     Route: 042
     Dates: start: 20160329
  2. LEVOCARNITINE. [Concomitant]
     Active Substance: LEVOCARNITINE
     Dates: start: 20150930
  3. LASIX [Concomitant]
     Active Substance: FUROSEMIDE
     Dates: start: 20160316
  4. MILRINONE [Concomitant]
     Active Substance: MILRINONE
     Dosage: DOSE: 0.375
     Route: 042
     Dates: start: 20150930
  5. ALBUTEROL. [Concomitant]
     Active Substance: ALBUTEROL
     Dates: start: 20150930
  6. DEXTROSE. [Concomitant]
     Active Substance: DEXTROSE
     Dates: start: 20150930
  7. LUMIZYME [Suspect]
     Active Substance: ALGLUCOSIDASE ALFA
     Indication: GLYCOGEN STORAGE DISEASE TYPE II
     Route: 042
  8. CARVEDILOL. [Concomitant]
     Active Substance: CARVEDILOL
     Dates: start: 20150930

REACTIONS (1)
  - Urinary tract infection [Recovered/Resolved]
